FAERS Safety Report 24563891 (Version 1)
Quarter: 2024Q4

REPORT INFORMATION
  Report Type: Spontaneous
  Country: CH (occurrence: CH)
  Receive Date: 20241030
  Receipt Date: 20241030
  Transmission Date: 20250115
  Serious: Yes (Hospitalization, Other)
  Sender: TAKEDA
  Company Number: None

PATIENT
  Age: 31 Year
  Sex: Female

DRUGS (9)
  1. LISDEXAMFETAMINE DIMESYLATE [Suspect]
     Active Substance: LISDEXAMFETAMINE DIMESYLATE
     Indication: Major depression
     Dosage: UNK
     Route: 065
     Dates: start: 20240718, end: 20240718
  2. DAFALGAN [Suspect]
     Active Substance: ACETAMINOPHEN
     Indication: Product used for unknown indication
     Dosage: 3000 MILLIGRAM
     Route: 065
     Dates: start: 20240718, end: 20240718
  3. FLUOXETINE [Suspect]
     Active Substance: FLUOXETINE HYDROCHLORIDE
     Indication: Major depression
     Dosage: 600 MILLIGRAM
     Route: 065
     Dates: start: 20240718, end: 20240718
  4. FLUOXETINE [Suspect]
     Active Substance: FLUOXETINE HYDROCHLORIDE
     Dosage: 40 MILLIGRAM, QD
     Route: 065
  5. QUETIAPINE [Suspect]
     Active Substance: QUETIAPINE
     Indication: Major depression
     Dosage: 30 DOSAGE FORM
     Route: 065
     Dates: start: 20240718, end: 20240718
  6. QUETIAPINE [Suspect]
     Active Substance: QUETIAPINE
     Dosage: 25 MILLIGRAM, QD
     Route: 065
  7. IBUPROFEN [Suspect]
     Active Substance: IBUPROFEN
     Indication: Major depression
     Dosage: UNK
     Route: 065
     Dates: start: 20240718, end: 20240718
  8. XANAX [Suspect]
     Active Substance: ALPRAZOLAM
     Indication: Major depression
     Dosage: 15 MILLIGRAM
     Route: 065
     Dates: start: 20240718, end: 20240718
  9. XANAX [Suspect]
     Active Substance: ALPRAZOLAM
     Dosage: 0.5 MILLIGRAM
     Route: 065

REACTIONS (5)
  - Intentional overdose [Recovered/Resolved]
  - Tachycardia [Recovered/Resolved]
  - Vomiting [Recovered/Resolved]
  - Nausea [Recovered/Resolved]
  - Electrocardiogram QT prolonged [Recovered/Resolved]

NARRATIVE: CASE EVENT DATE: 20240718
